FAERS Safety Report 8773801 (Version 8)
Quarter: 2016Q3

REPORT INFORMATION
  Report Type: Spontaneous
  Country: US (occurrence: US)
  Receive Date: 20120907
  Receipt Date: 20160802
  Transmission Date: 20161109
  Serious: Yes (Hospitalization, Disabling, Other)
  Sender: FDA-Public Use
  Company Number: US-009507513-1209USA000837

PATIENT
  Sex: Female
  Weight: 68.27 kg

DRUGS (3)
  1. FOSAMAX [Suspect]
     Active Substance: ALENDRONATE SODIUM
     Indication: OSTEOPOROSIS
     Dosage: 70 MG, QW
     Route: 048
     Dates: start: 20020913
  2. ALENDRONATE SODIUM. [Suspect]
     Active Substance: ALENDRONATE SODIUM
     Route: 065
  3. FOSAMAX [Suspect]
     Active Substance: ALENDRONATE SODIUM
     Indication: OSTEOPOROSIS
     Dosage: 70 MG, QW
     Route: 048

REACTIONS (33)
  - Femur fracture [Not Recovered/Not Resolved]
  - Diverticulitis [Unknown]
  - Gastrooesophageal reflux disease [Unknown]
  - Adverse event [Unknown]
  - Periodontal operation [Unknown]
  - Electrocardiogram ST-T change [Unknown]
  - Open reduction of fracture [Unknown]
  - Anaemia postoperative [Unknown]
  - Hysterectomy [Unknown]
  - Fracture nonunion [Unknown]
  - Body height decreased [Unknown]
  - Osteopenia [Unknown]
  - Periorbital oedema [Unknown]
  - Drug hypersensitivity [Unknown]
  - Constipation [Unknown]
  - Blood glucose increased [Unknown]
  - Hypercalcaemia [Unknown]
  - Electrocardiogram ST-T segment depression [Unknown]
  - Femur fracture [Unknown]
  - Osteoporosis [Unknown]
  - Polyp [Unknown]
  - Colon operation [Unknown]
  - Hypertension [Unknown]
  - Muscle spasms [Unknown]
  - Low turnover osteopathy [Unknown]
  - Diverticulum [Unknown]
  - Sinus bradycardia [Unknown]
  - Hip fracture [Unknown]
  - Stress fracture [Unknown]
  - Spinal operation [Unknown]
  - Foot fracture [Unknown]
  - Chronic obstructive pulmonary disease [Not Recovered/Not Resolved]
  - Oedema peripheral [Unknown]

NARRATIVE: CASE EVENT DATE: 2002
